FAERS Safety Report 20332370 (Version 2)
Quarter: 2022Q1

REPORT INFORMATION
  Report Type: Spontaneous
  Country: US (occurrence: US)
  Receive Date: 20220113
  Receipt Date: 20220131
  Transmission Date: 20220423
  Serious: Yes (Other)
  Sender: FDA-Public Use
  Company Number: US-BEH-2021140052

PATIENT
  Sex: Female

DRUGS (1)
  1. HIZENTRA [Suspect]
     Active Substance: HUMAN IMMUNOGLOBULIN G
     Indication: Immunodeficiency common variable
     Dosage: 10 GRAM, QW
     Route: 058
     Dates: start: 201611

REACTIONS (7)
  - Administration site scar [Unknown]
  - Product use complaint [Unknown]
  - Weight fluctuation [Unknown]
  - Infection [Unknown]
  - Weight decreased [Unknown]
  - Pneumonia [Unknown]
  - Dyspnoea [Unknown]
